FAERS Safety Report 11603492 (Version 1)
Quarter: 2015Q4

REPORT INFORMATION
  Report Type: Spontaneous
  Country: None (occurrence: None)
  Receive Date: 20151006
  Receipt Date: 20151006
  Transmission Date: 20160304
  Serious: Yes (Death)
  Sender: FDA-Public Use
  Company Number: None

PATIENT
  Age: 71 Year
  Sex: Male
  Weight: 45.9 kg

DRUGS (12)
  1. APIXABAN 5 MG BRISTOL-MYERS SQUIBB [Suspect]
     Active Substance: APIXABAN
     Indication: PERIPHERAL ARTERY THROMBOSIS
     Dosage: 1 TABLET BID ORAL
     Route: 048
     Dates: start: 20150919, end: 20151002
  2. AMLODIPINE [Concomitant]
     Active Substance: AMLODIPINE BESYLATE
  3. HALDOL [Concomitant]
     Active Substance: HALOPERIDOL
  4. APIXABAN 5 MG BRISTOL-MYERS SQUIBB [Suspect]
     Active Substance: APIXABAN
     Indication: JUGULAR VEIN THROMBOSIS
     Dosage: 1 TABLET BID ORAL
     Route: 048
     Dates: start: 20150919, end: 20151002
  5. ISOSORBIDE DINITRATE. [Concomitant]
     Active Substance: ISOSORBIDE DINITRATE
  6. XALATAN [Concomitant]
     Active Substance: LATANOPROST
  7. CHOLESTYRAMINE. [Concomitant]
     Active Substance: CHOLESTYRAMINE
  8. SCOPOLAMINE [Concomitant]
     Active Substance: SCOPOLAMINE
  9. ASPIRIN. [Concomitant]
     Active Substance: ASPIRIN
  10. ARANESP [Concomitant]
     Active Substance: DARBEPOETIN ALFA
  11. SODIUM BICARBONATE. [Concomitant]
     Active Substance: SODIUM BICARBONATE
  12. VALSARTAN. [Concomitant]
     Active Substance: VALSARTAN

REACTIONS (1)
  - Haemorrhage intracranial [None]

NARRATIVE: CASE EVENT DATE: 20151002
